FAERS Safety Report 12546842 (Version 1)
Quarter: 2016Q3

REPORT INFORMATION
  Report Type: Spontaneous
  Country: ES (occurrence: ES)
  Receive Date: 20160711
  Receipt Date: 20160711
  Transmission Date: 20161109
  Serious: Yes (Hospitalization, Other)
  Sender: FDA-Public Use
  Company Number: ES-ELI_LILLY_AND_COMPANY-ES201607002009

PATIENT
  Age: 59 Year
  Sex: Female

DRUGS (2)
  1. ZYPREXA [Suspect]
     Active Substance: OLANZAPINE
     Dosage: 5MG, UNKNOWN
     Route: 048
     Dates: start: 20140814, end: 20140814
  2. ZYPREXA [Suspect]
     Active Substance: OLANZAPINE
     Indication: BIPOLAR DISORDER
     Dosage: 5MG, UNKNOWN
     Route: 048
     Dates: start: 2012

REACTIONS (6)
  - Paraesthesia [Recovered/Resolved]
  - Paraesthesia [Unknown]
  - Acute respiratory failure [Unknown]
  - Acute respiratory failure [Recovered/Resolved]
  - Dyspnoea [Recovered/Resolved]
  - Dyspnoea [Unknown]

NARRATIVE: CASE EVENT DATE: 2012
